FAERS Safety Report 16034055 (Version 1)
Quarter: 2019Q1

REPORT INFORMATION
  Report Type: Spontaneous
  Country: US (occurrence: US)
  Receive Date: 20190305
  Receipt Date: 20190305
  Transmission Date: 20190418
  Serious: No
  Sender: FDA-Public Use
  Company Number: US-IMPAX LABORATORIES, LLC-2018-IPXL-02683

PATIENT
  Age: 82 Year
  Sex: Female
  Weight: 66 kg

DRUGS (9)
  1. RYTARY [Suspect]
     Active Substance: CARBIDOPA\LEVODOPA
     Indication: PARKINSON^S DISEASE
     Dosage: 48.75/195MG, ONE CAPSULE, FIVE TIMES DAILY
     Route: 048
     Dates: start: 201807, end: 2018
  2. RYTARY [Suspect]
     Active Substance: CARBIDOPA\LEVODOPA
     Dosage: 48.75/195MG TWO CAPSULES FIVE TIMES
     Route: 048
     Dates: start: 2018, end: 2018
  3. ELIQUIS [Concomitant]
     Active Substance: APIXABAN
     Indication: ATRIAL FIBRILLATION
     Dosage: UNK
     Route: 065
  4. CALCIUM [Concomitant]
     Active Substance: CALCIUM
     Indication: PRODUCT USED FOR UNKNOWN INDICATION
     Dosage: UNK
     Route: 065
  5. ASPIRIN. [Concomitant]
     Active Substance: ASPIRIN
     Indication: PRODUCT USED FOR UNKNOWN INDICATION
     Dosage: 81 MG, UNK
     Route: 065
  6. VITAMIN D [Concomitant]
     Active Substance: CHOLECALCIFEROL
     Indication: PRODUCT USED FOR UNKNOWN INDICATION
     Dosage: UNK
     Route: 065
  7. INSULIN [Concomitant]
     Active Substance: INSULIN NOS
     Indication: DIABETES MELLITUS
     Dosage: UNK
     Route: 065
  8. LEVOTHYROXINE. [Concomitant]
     Active Substance: LEVOTHYROXINE
     Indication: PRODUCT USED FOR UNKNOWN INDICATION
     Dosage: UNK
     Route: 065
  9. RYTARY [Suspect]
     Active Substance: CARBIDOPA\LEVODOPA
     Dosage: 48.75/195MG THREE CAPSULES FIVE TIMES A DAY
     Route: 048
     Dates: start: 2018

REACTIONS (8)
  - Muscle spasms [Recovering/Resolving]
  - Drug ineffective [Not Recovered/Not Resolved]
  - Muscular weakness [Recovering/Resolving]
  - Mental impairment [Recovering/Resolving]
  - Tremor [Recovering/Resolving]
  - Insomnia [Recovering/Resolving]
  - Prescribed overdose [Unknown]
  - Discomfort [Recovering/Resolving]

NARRATIVE: CASE EVENT DATE: 2018
